FAERS Safety Report 9968562 (Version 1)
Quarter: 2014Q1

REPORT INFORMATION
  Report Type: Report from Study
  Country: US (occurrence: US)
  Receive Date: 20140306
  Receipt Date: 20140306
  Transmission Date: 20141002
  Serious: No
  Sender: FDA-Public Use
  Company Number: US-ABBVIE-13P-163-1140604-00

PATIENT
  Age: 61 Year
  Sex: Female
  Weight: 94.89 kg

DRUGS (17)
  1. HUMIRA [Suspect]
     Indication: RHEUMATOID ARTHRITIS
     Dates: end: 20130730
  2. HUMIRA [Suspect]
     Dates: start: 20130829
  3. ALBUTEROL [Concomitant]
     Indication: ASTHMA
  4. ASPIRIN [Concomitant]
     Indication: ANGIOPATHY
  5. FOLIC ACID [Concomitant]
     Indication: VITAMIN SUPPLEMENTATION
  6. FUROSEMIDE [Concomitant]
     Indication: FLUID RETENTION
  7. IBUPROFEN [Concomitant]
     Indication: PAIN
  8. LORATADINE [Concomitant]
     Indication: HYPERSENSITIVITY
  9. NAPROSYN [Concomitant]
     Indication: PAIN
  10. NIFEDIPINE [Concomitant]
     Indication: HYPERTENSION
  11. NIACIN [Concomitant]
     Indication: PRODUCT USED FOR UNKNOWN INDICATION
  12. PANTOPRAZOLE [Concomitant]
     Indication: GASTROOESOPHAGEAL REFLUX DISEASE
  13. PANTOPRAZOLE [Concomitant]
     Indication: GASTRIC ULCER
  14. POTASSIUM CHLORIDE [Concomitant]
     Indication: ELECTROLYTE SUBSTITUTION THERAPY
  15. ROSUVASTATIN [Concomitant]
     Indication: BLOOD CHOLESTEROL INCREASED
  16. METHOTREXATE [Concomitant]
     Indication: RHEUMATOID ARTHRITIS
  17. PAXIL [Concomitant]
     Indication: DEPRESSION

REACTIONS (1)
  - Ear infection [Recovered/Resolved]
